FAERS Safety Report 13800787 (Version 1)
Quarter: 2017Q3

REPORT INFORMATION
  Report Type: Report from Study
  Country: CO (occurrence: CO)
  Receive Date: 20170727
  Receipt Date: 20170727
  Transmission Date: 20171127
  Serious: Yes (Hospitalization, Other)
  Sender: FDA-Public Use
  Company Number: CO-SA-2017SA089533

PATIENT
  Age: 52 Year
  Sex: Female

DRUGS (1)
  1. LEMTRADA [Suspect]
     Active Substance: ALEMTUZUMAB
     Indication: MULTIPLE SCLEROSIS
     Route: 041
     Dates: start: 20160115, end: 20160119

REACTIONS (11)
  - Leukopenia [Not Recovered/Not Resolved]
  - Influenza [Recovered/Resolved]
  - Nitrite urine present [Not Recovered/Not Resolved]
  - Fatigue [Not Recovered/Not Resolved]
  - Sepsis [Recovered/Resolved]
  - Urinary tract infection [Not Recovered/Not Resolved]
  - Productive cough [Not Recovered/Not Resolved]
  - Cough [Not Recovered/Not Resolved]
  - Asthenia [Not Recovered/Not Resolved]
  - White blood cells urine positive [Not Recovered/Not Resolved]
  - Bacterial test positive [Not Recovered/Not Resolved]

NARRATIVE: CASE EVENT DATE: 20160513
